FAERS Safety Report 8187954-5 (Version None)
Quarter: 2012Q1

REPORT INFORMATION
  Report Type: 
  Country: None (occurrence: None)
  Receive Date: 20120306
  Receipt Date: 20120227
  Transmission Date: 20120608
  Serious: Yes (Hospitalization)
  Sender: FDA-Public Use
  Company Number: JP-GLAXOSMITHKLINE-B0785272A

PATIENT
  Sex: Female

DRUGS (1)
  1. PAXIL [Suspect]
     Indication: POSTPARTUM DEPRESSION
     Route: 048

REACTIONS (5)
  - TREMOR [None]
  - SUICIDAL IDEATION [None]
  - INSOMNIA [None]
  - EATING DISORDER [None]
  - NAUSEA [None]
